FAERS Safety Report 17196098 (Version 1)
Quarter: 2019Q4

REPORT INFORMATION
  Report Type: Spontaneous
  Country: US (occurrence: US)
  Receive Date: 20191202
  Receipt Date: 20191202
  Transmission Date: 20200122
  Serious: Yes (Life-Threatening, Hospitalization)
  Sender: FDA-Public Use
  Company Number: None

PATIENT
  Age: 72 Year
  Sex: Male
  Weight: 104.33 kg

DRUGS (7)
  1. KRYSTEXXA [Suspect]
     Active Substance: PEGLOTICASE
     Indication: BLOOD URIC ACID ABNORMAL
     Dosage: ?          OTHER ROUTE:INFUSION 2HRS?
     Dates: start: 20190923, end: 20191010
  2. D [Concomitant]
  3. MAGNESIUM [Concomitant]
     Active Substance: MAGNESIUM
  4. NAC [Concomitant]
     Active Substance: ACETYLCYSTEINE
  5. MSM [Concomitant]
     Active Substance: DIMETHYL SULFONE
  6. TURMERIC [Concomitant]
     Active Substance: HERBALS\TURMERIC
  7. COENZYME Q10 [Concomitant]
     Active Substance: UBIDECARENONE

REACTIONS (5)
  - Wrong technique in product usage process [None]
  - Pancreatitis [None]
  - Infusion related reaction [None]
  - Hypotension [None]
  - Hypomagnesaemia [None]

NARRATIVE: CASE EVENT DATE: 20191010
